FAERS Safety Report 5956931-4 (Version None)
Quarter: 2008Q4

REPORT INFORMATION
  Report Type: 
  Country: None (occurrence: None)
  Receive Date: 20081118
  Receipt Date: 20081112
  Transmission Date: 20090506
  Serious: Yes (Other)
  Sender: FDA-Public Use
  Company Number: DK-WYE-G02560808

PATIENT
  Sex: Male
  Weight: 64 kg

DRUGS (10)
  1. RAPAMUNE [Suspect]
     Indication: GRAFT VERSUS HOST DISEASE
     Route: 048
     Dates: start: 20080523, end: 20080621
  2. PLENDIL [Concomitant]
     Indication: HYPERTENSION
     Route: 048
     Dates: start: 20070716
  3. PREDNISOLONE [Concomitant]
     Indication: GRAFT VERSUS HOST DISEASE
     Route: 048
     Dates: start: 20070403
  4. DAPSONE [Interacting]
  5. FURIX [Interacting]
     Dosage: UNKNOWN
     Route: 048
  6. CIPROFLOXACIN HCL [Interacting]
     Dosage: UNKNOWN
     Route: 048
  7. ZELITREX [Interacting]
  8. VFEND [Interacting]
  9. INNOHEP [Concomitant]
     Indication: THROMBOPHLEBITIS
     Dosage: 9000 IE
     Route: 058
     Dates: start: 20050520
  10. NEORECORMON [Concomitant]
     Indication: ANAEMIA
     Route: 058
     Dates: start: 20080321

REACTIONS (1)
  - TOXIC EPIDERMAL NECROLYSIS [None]
